FAERS Safety Report 7163759-9 (Version None)
Quarter: 2010Q4

REPORT INFORMATION
  Report Type: 
  Country: None (occurrence: None)
  Receive Date: 20101215
  Receipt Date: 20100611
  Transmission Date: 20110411
  Serious: Yes (Other)
  Sender: FDA-Public Use
  Company Number: US-PFIZER INC-2008043449

PATIENT
  Sex: Female
  Weight: 66.678 kg

DRUGS (9)
  1. LYRICA [Suspect]
     Dosage: 50 MG, UNK
  2. GABAPENTIN [Suspect]
     Dosage: UNK
  3. DILANTIN-125 [Suspect]
     Indication: CONVULSION
     Dosage: 200 MG, 2X/DAY
     Dates: start: 20030101
  4. CELEBREX [Suspect]
     Indication: ADENOMATOUS POLYPOSIS COLI
     Dosage: UNK
     Dates: start: 20030101
  5. CELEBREX [Suspect]
     Indication: ARTHRITIS
  6. PREDNISONE [Concomitant]
  7. PREVACID [Concomitant]
  8. ELAVIL [Concomitant]
  9. TRAZODONE [Concomitant]
     Indication: SLEEP DISORDER

REACTIONS (11)
  - ARTHRITIS [None]
  - CONVULSION [None]
  - DRUG DISPENSING ERROR [None]
  - DRUG INEFFECTIVE [None]
  - GAIT DISTURBANCE [None]
  - GINGIVAL DISORDER [None]
  - INSOMNIA [None]
  - MENISCUS LESION [None]
  - MUSCLE TWITCHING [None]
  - TOOTH LOSS [None]
  - TOOTHACHE [None]
